FAERS Safety Report 4330569-7 (Version None)
Quarter: 2004Q1

REPORT INFORMATION
  Report Type: 
  Country: None (occurrence: None)
  Receive Date: 20040329
  Receipt Date: 20040315
  Transmission Date: 20041129
  Serious: Yes (Hospitalization)
  Sender: FDA-Public Use
  Company Number: HQWYE936117MAR04

PATIENT
  Age: 27 Year
  Sex: Male

DRUGS (2)
  1. ZOSYN [Suspect]
     Indication: OSTEOMYELITIS
     Dosage: 3.375 G 1X PER 6 HR, INTRAVENOUS
     Route: 042
     Dates: start: 20040312, end: 20040313
  2. MOTRIN [Concomitant]

REACTIONS (1)
  - DIPLEGIA [None]
